FAERS Safety Report 4485408-0 (Version None)
Quarter: 2004Q4

REPORT INFORMATION
  Report Type: 
  Country: None (occurrence: None)
  Receive Date: 20041026
  Receipt Date: 20030318
  Transmission Date: 20050328
  Serious: Yes (Death, Hospitalization)
  Sender: FDA-Public Use
  Company Number: FR-ABBOTT-03P-056-0213934-00

PATIENT
  Age: 69 Year
  Sex: Male

DRUGS (17)
  1. DEPAKINE CHRONO TABLETS [Suspect]
     Indication: BRAIN NEOPLASM MALIGNANT
     Route: 048
     Dates: start: 20021206, end: 20030130
  2. DEPAKINE CHRONO TABLETS [Suspect]
     Route: 048
     Dates: start: 20030103, end: 20030119
  3. DEPAKINE CHRONO TABLETS [Suspect]
     Route: 048
     Dates: start: 20021227, end: 20021227
  4. PROCARBAZINE HYDROCHLORIDE [Suspect]
     Indication: BRAIN NEOPLASM MALIGNANT
     Route: 048
     Dates: start: 20030103, end: 20030119
  5. LOMUSTINE [Suspect]
     Indication: BRAIN NEOPLASM MALIGNANT
     Route: 048
     Dates: start: 20030124, end: 20030124
  6. LOMUSTINE [Suspect]
     Route: 048
     Dates: start: 20030119, end: 20030123
  7. LOMUSTINE [Suspect]
     Dates: start: 20021227, end: 20021227
  8. LOMUSTINE [Suspect]
     Dates: start: 20030103, end: 20030103
  9. CEFOTAXIME SODIUM [Suspect]
     Indication: DRUG USE FOR UNKNOWN INDICATION
     Route: 042
     Dates: start: 20030119, end: 20030123
  10. VINCRISTINE SULFATE [Suspect]
     Indication: BRAIN NEOPLASM MALIGNANT
     Route: 042
     Dates: start: 20030124, end: 20030124
  11. VINCRISTINE SULFATE [Suspect]
     Route: 042
     Dates: start: 20030103, end: 20030103
  12. ACETAMINOPHEN AND CODEINE PHOSPHATE [Suspect]
     Indication: DRUG USE FOR UNKNOWN INDICATION
     Route: 048
     Dates: start: 20021206, end: 20030130
  13. PREDNISOLONE SODIUM PHOSPHATE [Suspect]
     Indication: DRUG USE FOR UNKNOWN INDICATION
     Route: 048
     Dates: start: 20021206, end: 20030225
  14. TRANXENE [Concomitant]
     Indication: DRUG USE FOR UNKNOWN INDICATION
     Route: 048
     Dates: start: 20021206, end: 20030130
  15. GENTAMICIN SULFATE [Concomitant]
     Indication: DRUG USE FOR UNKNOWN INDICATION
     Route: 042
     Dates: start: 20030122, end: 20030126
  16. POTASSIUM CHLORIDE [Concomitant]
     Indication: DRUG USE FOR UNKNOWN INDICATION
     Route: 048
     Dates: start: 20021206
  17. OMEPRAZOLE [Concomitant]
     Indication: DRUG USE FOR UNKNOWN INDICATION
     Route: 048
     Dates: start: 20021206

REACTIONS (12)
  - APLASIA [None]
  - CHILLS [None]
  - CIRCULATORY COLLAPSE [None]
  - DEPRESSED LEVEL OF CONSCIOUSNESS [None]
  - GENERAL PHYSICAL HEALTH DETERIORATION [None]
  - HAEMODYNAMIC INSTABILITY [None]
  - HEPATITIS [None]
  - HISTIOCYTOSIS HAEMATOPHAGIC [None]
  - JAUNDICE [None]
  - PURPURA [None]
  - PYREXIA [None]
  - TOXIC EPIDERMAL NECROLYSIS [None]
